FAERS Safety Report 18391840 (Version 1)
Quarter: 2020Q4

REPORT INFORMATION
  Report Type: Spontaneous
  Country: US (occurrence: US)
  Receive Date: 20201016
  Receipt Date: 20201016
  Transmission Date: 20210114
  Serious: No
  Sender: FDA-Public Use
  Company Number: US-GLAXOSMITHKLINE-US2020AMR202142

PATIENT
  Sex: Female

DRUGS (2)
  1. ALBUTEROL SULFATE. [Suspect]
     Active Substance: ALBUTEROL SULFATE
     Indication: ASTHMA
     Dosage: 1 PUFF(S) (EVERY 6 HOURS)
     Route: 065
     Dates: start: 2017
  2. ALBUTEROL SULFATE. [Suspect]
     Active Substance: ALBUTEROL SULFATE
     Dosage: 2 PUFF(S) EVERY 6 HOURS
     Route: 065

REACTIONS (3)
  - Product dose omission issue [Unknown]
  - Prescription drug used without a prescription [Unknown]
  - Wrong technique in device usage process [Unknown]
